FAERS Safety Report 19583702 (Version 2)
Quarter: 2021Q4

REPORT INFORMATION
  Report Type: Spontaneous
  Country: US (occurrence: US)
  Receive Date: 20210720
  Receipt Date: 20211020
  Transmission Date: 20220303
  Serious: No
  Sender: FDA-Public Use
  Company Number: US-INSMED, INC.-2021-08810-US

PATIENT
  Age: 61 Year
  Sex: Female

DRUGS (1)
  1. ARIKAYCE [Suspect]
     Active Substance: AMIKACIN
     Indication: Mycobacterial infection
     Dosage: 590 MILLIGRAM, QD
     Route: 055

REACTIONS (6)
  - Dry throat [Unknown]
  - Nasopharyngitis [Unknown]
  - Sputum discoloured [Not Recovered/Not Resolved]
  - Productive cough [Not Recovered/Not Resolved]
  - Wheezing [Unknown]
  - Cough [Not Recovered/Not Resolved]

NARRATIVE: CASE EVENT DATE: 20210701
